FAERS Safety Report 9075238 (Version 1)
Quarter: 2013Q1

REPORT INFORMATION
  Report Type: Report from Study
  Country: US (occurrence: US)
  Receive Date: 20130131
  Receipt Date: 20130131
  Transmission Date: 20140127
  Serious: No
  Sender: FDA-Public Use
  Company Number: US-ABBOTT-12P-163-1006830-00

PATIENT
  Age: 8 None
  Sex: Male

DRUGS (6)
  1. HUMIRA [Suspect]
     Indication: JUVENILE IDIOPATHIC ARTHRITIS
     Dates: start: 2011
  2. FOLIC ACID [Concomitant]
     Indication: VITAMIN SUPPLEMENTATION
  3. METHOTREXATE [Concomitant]
     Indication: JUVENILE IDIOPATHIC ARTHRITIS
  4. ADVIL [Concomitant]
     Indication: JUVENILE IDIOPATHIC ARTHRITIS
  5. LIDOCAINE [Concomitant]
     Indication: PRODUCT USED FOR UNKNOWN INDICATION
  6. NAPROXEN [Concomitant]
     Indication: JUVENILE IDIOPATHIC ARTHRITIS

REACTIONS (3)
  - Cough [Not Recovered/Not Resolved]
  - Pain in extremity [Not Recovered/Not Resolved]
  - Nasopharyngitis [Not Recovered/Not Resolved]
